FAERS Safety Report 20746547 (Version 1)
Quarter: 2022Q2

REPORT INFORMATION
  Report Type: Spontaneous
  Country: US (occurrence: US)
  Receive Date: 20220425
  Receipt Date: 20220425
  Transmission Date: 20220720
  Serious: No
  Sender: FDA-Public Use
  Company Number: US-MYLANLABS-2022M1026882

PATIENT
  Sex: Male
  Weight: 88.45 kg

DRUGS (2)
  1. MUSE [Suspect]
     Active Substance: ALPROSTADIL
     Indication: Erectile dysfunction
     Dosage: UNK
     Route: 066
  2. CIALIS [Concomitant]
     Active Substance: TADALAFIL
     Indication: Erectile dysfunction
     Dosage: UNK

REACTIONS (4)
  - Discomfort [Unknown]
  - Drug ineffective [Unknown]
  - Product label confusion [Unknown]
  - Wrong technique in product usage process [Unknown]
